FAERS Safety Report 8611204-6 (Version None)
Quarter: 2012Q3

REPORT INFORMATION
  Report Type: 
  Country: None (occurrence: None)
  Receive Date: 20120803
  Receipt Date: 20120724
  Transmission Date: 20120928
  Serious: Yes (Other)
  Sender: FDA-Public Use
  Company Number: 2012SA053102

PATIENT
  Sex: Female

DRUGS (1)
  1. MENTHOL [Suspect]
     Dates: start: 20120601

REACTIONS (2)
  - APPLICATION SITE VESICLES [None]
  - APPLICATION SITE PAIN [None]
